FAERS Safety Report 16595983 (Version 3)
Quarter: 2019Q3

REPORT INFORMATION
  Report Type: Report from Study
  Country: None (occurrence: IL)
  Receive Date: 20190719
  Receipt Date: 20190904
  Transmission Date: 20191004
  Serious: Yes (Life-Threatening, Hospitalization)
  Sender: FDA-Public Use
  Company Number: IL-ABBVIE-18S-082-2545014-00

PATIENT
  Age: 82 Year
  Sex: Female

DRUGS (3)
  1. DUODOPA [Suspect]
     Active Substance: CARBIDOPA\LEVODOPA
     Dosage: CURRENT MORNING DOSE- 8.0 ML, CURRENT FIXED RATE-2.3 ML/ HOUR,?CURRENT EXTRA DOSE- 1.3 ML
     Route: 050
  2. DUODOPA [Suspect]
     Active Substance: CARBIDOPA\LEVODOPA
     Dosage: CURRENT MORNING DOSE- 7.5 ML, CURRENT FIXED RATE- 1.7 ML/ HOUR, CURRENT EXTRA DOSE- 1.0 ML
     Route: 050
     Dates: start: 201811
  3. DUODOPA [Suspect]
     Active Substance: CARBIDOPA\LEVODOPA
     Indication: PARKINSON^S DISEASE
     Dosage: MORNING 7.5 ML, CONTINUOUS RATE 1.7 ML/HOUR, EXTRA 1 ML
     Route: 050
     Dates: start: 20181101, end: 201811

REACTIONS (9)
  - Vomiting [Recovering/Resolving]
  - Bezoar [Recovering/Resolving]
  - Gastrointestinal stoma complication [Unknown]
  - Incorrect route of product administration [Recovering/Resolving]
  - Abdominal pain [Recovering/Resolving]
  - Nausea [Recovering/Resolving]
  - Stoma site pain [Recovering/Resolving]
  - Pneumoperitoneum [Unknown]
  - Device dislocation [Recovering/Resolving]

NARRATIVE: CASE EVENT DATE: 201811
